FAERS Safety Report 10017975 (Version 2)
Quarter: 2014Q1

REPORT INFORMATION
  Report Type: Spontaneous
  Country: FR (occurrence: FR)
  Receive Date: 20140318
  Receipt Date: 20140318
  Transmission Date: 20141002
  Serious: Yes (Other)
  Sender: FDA-Public Use
  Company Number: FR-JNJFOC-20140216727

PATIENT
  Age: 61 Year
  Sex: Male
  Weight: 67 kg

DRUGS (4)
  1. REMICADE [Suspect]
     Indication: COLITIS ULCERATIVE
     Dosage: FIFTH INFUSION
     Route: 042
     Dates: start: 20140224, end: 20140224
  2. REMICADE [Suspect]
     Indication: COLITIS ULCERATIVE
     Route: 042
     Dates: start: 201310
  3. POLARAMIN [Concomitant]
     Indication: PREMEDICATION
     Route: 065
  4. CETRIZINE [Concomitant]
     Indication: PREMEDICATION
     Route: 065
     Dates: start: 20140224

REACTIONS (5)
  - Infusion related reaction [Recovered/Resolved]
  - Drug intolerance [Recovered/Resolved]
  - Rash [Recovered/Resolved]
  - Pruritus generalised [Recovered/Resolved]
  - Urticaria [Recovered/Resolved]
